FAERS Safety Report 17208536 (Version 1)
Quarter: 2019Q4

REPORT INFORMATION
  Report Type: Spontaneous
  Country: US (occurrence: US)
  Receive Date: 20191227
  Receipt Date: 20191227
  Transmission Date: 20200122
  Serious: Yes (Hospitalization)
  Sender: FDA-Public Use
  Company Number: US-MYLANLABS-2019M1129280

PATIENT
  Age: 82 Year
  Sex: Female

DRUGS (1)
  1. HYDRALAZINE [Suspect]
     Active Substance: HYDRALAZINE HYDROCHLORIDE
     Indication: HYPERTENSION
     Dosage: SINGLE DOSE
     Route: 042

REACTIONS (3)
  - Blood pressure decreased [Recovered/Resolved]
  - Optic ischaemic neuropathy [Recovered/Resolved]
  - Mental status changes [Recovered/Resolved]
